FAERS Safety Report 7572352-5 (Version None)
Quarter: 2011Q2

REPORT INFORMATION
  Report Type: 
  Country: None (occurrence: None)
  Receive Date: 20110624
  Receipt Date: 20110617
  Transmission Date: 20111010
  Serious: Yes (Hospitalization)
  Sender: FDA-Public Use
  Company Number: PHHY2011US53831

PATIENT
  Sex: Male

DRUGS (13)
  1. AVODART [Concomitant]
  2. INSULIN [Concomitant]
  3. FLOMAX [Concomitant]
  4. XOPENEX [Concomitant]
  5. PREDNISONE [Concomitant]
  6. ALBUTEROL SULFATE AUTOHALER [Concomitant]
     Dosage: PRN
  7. ADVAIR DISKUS 100/50 [Concomitant]
  8. ATROVENT [Concomitant]
  9. NYSTATIN [Concomitant]
  10. NEURONTIN [Concomitant]
  11. NEXIUM [Concomitant]
  12. TOBI [Suspect]
     Indication: BRONCHIECTASIS
     Dosage: 300 MG, BID
     Dates: start: 20110401
  13. FLEXERIL [Concomitant]

REACTIONS (3)
  - URINARY TRACT INFECTION [None]
  - THROMBOSIS [None]
  - PYREXIA [None]
